FAERS Safety Report 6530240-7 (Version None)
Quarter: 2009Q4

REPORT INFORMATION
  Report Type: 
  Country: None (occurrence: None)
  Receive Date: 20091231
  Receipt Date: 20091222
  Transmission Date: 20100525
  Serious: Yes (Hospitalization)
  Sender: FDA-Public Use
  Company Number: 2008S1000287

PATIENT
  Age: 50 Year
  Sex: Male
  Weight: 86.3 kg

DRUGS (6)
  1. CUBICIN [Suspect]
     Indication: DEVICE RELATED INFECTION
     Dosage: 5.79 MG/KG;Q24H;IV
     Route: 042
     Dates: start: 20080523, end: 20080527
  2. LISINOPRIL [Concomitant]
  3. CALCIUM [Concomitant]
  4. MULTI-VITAMINS [Concomitant]
  5. CIPROFLOXACIN [Concomitant]
  6. PREV MEDS [Concomitant]

REACTIONS (5)
  - CULTURE WOUND POSITIVE [None]
  - DEEP VEIN THROMBOSIS [None]
  - MEDICAL DEVICE COMPLICATION [None]
  - OFF LABEL USE [None]
  - PSEUDOMONAS INFECTION [None]
